FAERS Safety Report 9169638 (Version 3)
Quarter: 2013Q3

REPORT INFORMATION
  Report Type: Spontaneous
  Country: DK (occurrence: DK)
  Receive Date: 20130318
  Receipt Date: 20130919
  Transmission Date: 20140515
  Serious: Yes (Hospitalization, Other)
  Sender: FDA-Public Use
  Company Number: DK-PFIZER INC-2013088467

PATIENT
  Age: 57 Year
  Sex: Female
  Weight: 62 kg

DRUGS (3)
  1. ARTHROTEC [Suspect]
     Indication: ARTHRALGIA
     Dosage: 1 DF, 1X/DAY (200MCG+50MG)
     Route: 048
     Dates: start: 20130214, end: 20130220
  2. OMEPRAZOL [Concomitant]
     Indication: ARTHRALGIA
  3. LERCANIDIPINE HYDROCHLORIDE [Concomitant]
     Indication: ARTHRALGIA

REACTIONS (2)
  - Abdominal pain upper [Recovered/Resolved]
  - Enzyme level increased [Unknown]
